FAERS Safety Report 5889593-5 (Version None)
Quarter: 2008Q3

REPORT INFORMATION
  Report Type: 
  Country: None (occurrence: None)
  Receive Date: 20080919
  Receipt Date: 20080912
  Transmission Date: 20090109
  Serious: Yes (Hospitalization)
  Sender: FDA-Public Use
  Company Number: A0748266A

PATIENT
  Age: 65 Year
  Sex: Female
  Weight: 84.1 kg

DRUGS (4)
  1. AVANDIA [Suspect]
     Indication: DIABETES MELLITUS
     Dosage: 4MG TWICE PER DAY
     Route: 048
     Dates: start: 20051208, end: 20070504
  2. LIPITOR [Concomitant]
  3. CELEXA [Concomitant]
  4. ZOLOFT [Concomitant]

REACTIONS (1)
  - CEREBROVASCULAR ACCIDENT [None]
